FAERS Safety Report 5192869-0 (Version None)
Quarter: 2006Q4

REPORT INFORMATION
  Report Type: 
  Country: None (occurrence: None)
  Receive Date: 20061228
  Receipt Date: 20060119
  Transmission Date: 20070319
  Serious: No
  Sender: FDA-Public Use
  Company Number: US-GLAXOSMITHKLINE-A0590062A

PATIENT
  Age: 37 Year
  Sex: Male

DRUGS (3)
  1. FLONASE [Suspect]
     Route: 045
     Dates: start: 20050801, end: 20060116
  2. EFFEXOR XR [Concomitant]
  3. RISPERDAL [Concomitant]

REACTIONS (2)
  - AGITATION [None]
  - DEPRESSION [None]
